FAERS Safety Report 11745995 (Version 3)
Quarter: 2016Q1

REPORT INFORMATION
  Report Type: Spontaneous
  Country: PR (occurrence: PR)
  Receive Date: 20151117
  Receipt Date: 20160201
  Transmission Date: 20160525
  Serious: No
  Sender: FDA-Public Use
  Company Number: PR-PFIZER INC-2015348221

PATIENT
  Age: 32 Year
  Sex: Female

DRUGS (12)
  1. ATORVASTATIN [Concomitant]
     Active Substance: ATORVASTATIN
     Dosage: 20 MG, UNK
  2. LEVOTHYROXINE. [Suspect]
     Active Substance: LEVOTHYROXINE
     Dosage: 75 UG, 1X/DAY
  3. GEMFIBROZIL. [Concomitant]
     Active Substance: GEMFIBROZIL
     Dosage: 600 MG, UNK
  4. TOPAMAX [Concomitant]
     Active Substance: TOPIRAMATE
     Dosage: 25 MG, UNK
  5. FIORICET [Concomitant]
     Active Substance: ACETAMINOPHEN\BUTALBITAL\CAFFEINE
     Dosage: UNK (50-325 MG)
  6. NORFLEX [Concomitant]
     Active Substance: ORPHENADRINE CITRATE
     Dosage: 100 MG, UNK
  7. PRILOSEC [Concomitant]
     Active Substance: OMEPRAZOLE MAGNESIUM
     Dosage: 20 MG, UNK
  8. GAS-X [Concomitant]
     Active Substance: DIMETHICONE
     Dosage: UNK
  9. VASOTEC [Concomitant]
     Active Substance: ENALAPRIL MALEATE
     Dosage: 5 MG, UNK
  10. LEVOXYL [Suspect]
     Active Substance: LEVOTHYROXINE SODIUM
     Indication: HYPOTHYROIDISM
     Dosage: 25 UG, 1X/DAY
  11. CIPROFLOXACIN. [Concomitant]
     Active Substance: CIPROFLOXACIN
     Dosage: 750 MG, UNK
  12. SULINDAC. [Concomitant]
     Active Substance: SULINDAC
     Dosage: 200 MG, UNK

REACTIONS (1)
  - Drug ineffective [Unknown]
